FAERS Safety Report 5057750-6 (Version None)
Quarter: 2006Q3

REPORT INFORMATION
  Report Type: 
  Country: None (occurrence: None)
  Receive Date: 20060721
  Receipt Date: 20060201
  Transmission Date: 20061208
  Serious: No
  Sender: FDA-Public Use
  Company Number: US-GLAXOSMITHKLINE-A0592190A

PATIENT
  Age: 55 Year
  Sex: Female
  Weight: 93.6 kg

DRUGS (4)
  1. AVANDIA [Suspect]
     Indication: DRUG USE FOR UNKNOWN INDICATION
     Route: 048
     Dates: start: 20050101
  2. BYETTA [Suspect]
     Indication: DRUG USE FOR UNKNOWN INDICATION
     Dosage: 10MCG TWICE PER DAY
     Route: 058
     Dates: start: 20050801
  3. GLUCOPHAGE [Concomitant]
     Route: 065
     Dates: start: 20051101
  4. ACTOS [Concomitant]
     Route: 065
     Dates: end: 20050101

REACTIONS (4)
  - BLOOD GLUCOSE INCREASED [None]
  - NAUSEA [None]
  - VOMITING [None]
  - WEIGHT DECREASED [None]
